FAERS Safety Report 4709037-6 (Version None)
Quarter: 2005Q3

REPORT INFORMATION
  Report Type: 
  Country: None (occurrence: None)
  Receive Date: 20050707
  Receipt Date: 20050620
  Transmission Date: 20060218
  Serious: Yes (Hospitalization)
  Sender: FDA-Public Use
  Company Number: 2005063279

PATIENT
  Sex: Female
  Weight: 60 kg

DRUGS (2)
  1. ZELDOX                     (ZIPRASIDONE) [Suspect]
     Indication: SCHIZOAFFECTIVE DISORDER
     Dosage: 160 MG (80 MG, 2 IN 1 D), ORAL
     Route: 048
     Dates: start: 20050314, end: 20050328
  2. TREVILOR                               (VENLAFAXINE HYDROCHLORIDE) [Concomitant]

REACTIONS (4)
  - PARANOIA [None]
  - SOMNOLENCE [None]
  - STUPOR [None]
  - THERAPY NON-RESPONDER [None]
